FAERS Safety Report 5938553-4 (Version None)
Quarter: 2008Q4

REPORT INFORMATION
  Report Type: 
  Country: None (occurrence: None)
  Receive Date: 20081103
  Receipt Date: 20081024
  Transmission Date: 20090506
  Serious: Yes (Hospitalization, Other)
  Sender: FDA-Public Use
  Company Number: PHBS2007JP07917

PATIENT
  Age: 88 Year
  Sex: Female
  Weight: 46 kg

DRUGS (5)
  1. DICLOFENAC SODIUM [Suspect]
     Dosage: 25
  2. LOXOPROFEN SODIUM [Suspect]
     Indication: ANALGESIA
     Dosage: 60 MG/DAY
     Route: 048
     Dates: start: 20060101
  3. CEFOTIAM HYDROCHLORIDE [Concomitant]
     Indication: CELLULITIS
     Dosage: 2 G, UNK
  4. DORIPENEM [Concomitant]
     Indication: CELLULITIS
     Dosage: 0.5 G, UNK
  5. REHYDRATION SOLUTION [Concomitant]
     Route: 041

REACTIONS (26)
  - ABDOMINAL DISCOMFORT [None]
  - ABSCESS [None]
  - ABSCESS DRAINAGE [None]
  - BLOOD PRESSURE DECREASED [None]
  - CATHETER PLACEMENT [None]
  - CLAMPING OF BLOOD VESSEL [None]
  - DISSEMINATED INTRAVASCULAR COAGULATION [None]
  - DYSPNOEA [None]
  - ENDOSCOPY ABNORMAL [None]
  - GASTRIC ULCER [None]
  - GASTRIC ULCER HAEMORRHAGE [None]
  - HAEMATEMESIS [None]
  - HAEMOGLOBIN DECREASED [None]
  - HEPATIC FUNCTION ABNORMAL [None]
  - INCISIONAL DRAINAGE [None]
  - INFECTION [None]
  - INFLAMMATION [None]
  - LOCAL SWELLING [None]
  - LOSS OF CONSCIOUSNESS [None]
  - MEDIASTINAL ABSCESS [None]
  - MEDIASTINITIS [None]
  - MELAENA [None]
  - NECROSIS [None]
  - SHOCK HAEMORRHAGIC [None]
  - SURGERY [None]
  - TOOTH EXTRACTION [None]
